FAERS Safety Report 9691412 (Version 2)
Quarter: 2014Q1

REPORT INFORMATION
  Report Type: Report from Study
  Country: AU (occurrence: AU)
  Receive Date: 20131115
  Receipt Date: 20140101
  Transmission Date: 20141002
  Serious: Yes (Other)
  Sender: FDA-Public Use
  Company Number: PHHY2013AU130672

PATIENT
  Age: 76 Year
  Sex: Female

DRUGS (5)
  1. ACLASTA [Suspect]
     Dosage: 5 MG, UNK
     Route: 042
     Dates: start: 20121102
  2. DETROPIN [Concomitant]
     Indication: DEPRESSION
     Dosage: 50 MG, UNK
     Dates: start: 2011
  3. DIPYRIDAMOLE [Concomitant]
     Indication: ANGIOPATHY
     Dosage: 200 MG, UNK
     Dates: start: 2011
  4. OLMESARTAN [Concomitant]
     Indication: HYPERTENSION
     Dosage: 20 MG, UNK
  5. ROSUVASTATIN [Concomitant]
     Indication: ANGIOPATHY
     Dosage: 5 MG, UNK

REACTIONS (1)
  - Carotid artery occlusion [Not Recovered/Not Resolved]
